FAERS Safety Report 10049528 (Version 1)
Quarter: 2014Q1

REPORT INFORMATION
  Report Type: Spontaneous
  Country: US (occurrence: None)
  Receive Date: 20140331
  Receipt Date: 20140331
  Transmission Date: 20141002
  Serious: Yes (Life-Threatening, Hospitalization, Disabling, Other)
  Sender: FDA-Public Use
  Company Number: None

PATIENT
  Age: 57 Year
  Sex: Male
  Weight: 108.86 kg

DRUGS (1)
  1. CYANOCOBALAMIN [Suspect]
     Indication: GASTRIC BYPASS
     Route: 030
     Dates: start: 20111130, end: 20111212

REACTIONS (13)
  - Pyrexia [None]
  - Hyperhidrosis [None]
  - Blood pressure decreased [None]
  - Erythema [None]
  - Renal failure [None]
  - Septic shock [None]
  - Arthritis bacterial [None]
  - Necrosis [None]
  - Infection [None]
  - Wound drainage [None]
  - Impaired work ability [None]
  - Deformity [None]
  - Musculoskeletal pain [None]
